FAERS Safety Report 8377814-9 (Version None)
Quarter: 2012Q2

REPORT INFORMATION
  Report Type: 
  Country: None (occurrence: None)
  Receive Date: 20120522
  Receipt Date: 20120516
  Transmission Date: 20120825
  Serious: Yes (Other)
  Sender: FDA-Public Use
  Company Number: US-PFIZER INC-2012098460

PATIENT
  Sex: Female

DRUGS (5)
  1. VISTARIL [Suspect]
     Dosage: UNK
  2. PREMARIN [Suspect]
     Dosage: UNK
  3. NEURONTIN [Suspect]
     Dosage: UNK
  4. EFFEXOR XR [Suspect]
     Dosage: UNK
  5. PREMARIN [Suspect]
     Dosage: UNK

REACTIONS (6)
  - HAEMORRHAGE [None]
  - DRUG INEFFECTIVE [None]
  - SWELLING [None]
  - DEMENTIA ALZHEIMER'S TYPE [None]
  - OEDEMA PERIPHERAL [None]
  - PAIN IN EXTREMITY [None]
